FAERS Safety Report 17268681 (Version 1)
Quarter: 2020Q1

REPORT INFORMATION
  Report Type: Spontaneous
  Country: US (occurrence: US)
  Receive Date: 20200114
  Receipt Date: 20200114
  Transmission Date: 20200409
  Serious: Yes (Hospitalization)
  Sender: FDA-Public Use
  Company Number: None

PATIENT
  Age: 11 Year
  Sex: Male

DRUGS (13)
  1. TOPIRAMATE SUSP 6MG/ML [Concomitant]
  2. ONFI 2.5MG/ML [Concomitant]
  3. GABAPENTIN 600MG [Concomitant]
     Active Substance: GABAPENTIN
  4. PULMICORT 0.5MG/2ML NEBS [Concomitant]
  5. PROVENTIL HFA [Concomitant]
     Active Substance: ALBUTEROL SULFATE
  6. DIASTAT 10MG [Concomitant]
  7. BACLOFEN SUSP 1MG/ML [Concomitant]
  8. FLONASE [Concomitant]
     Active Substance: FLUTICASONE PROPIONATE
  9. CORTEF 5MG [Concomitant]
  10. EPIDIOLEX [Suspect]
     Active Substance: CANNABIDIOL
     Indication: LENNOX-GASTAUT SYNDROME
     Dosage: ?          OTHER ROUTE:G-TUBE?
     Dates: start: 20191218
  11. PULMOZYME [Concomitant]
     Active Substance: DORNASE ALFA
  12. HYDROCORTISONE 1% CREAM [Concomitant]
  13. SOLU-CORTEF 1000MG INJECTION [Concomitant]

REACTIONS (2)
  - Nasal congestion [None]
  - Dyspnoea [None]

NARRATIVE: CASE EVENT DATE: 20200113
